FAERS Safety Report 6702621-X (Version None)
Quarter: 2010Q2

REPORT INFORMATION
  Report Type: 
  Country: None (occurrence: None)
  Receive Date: 20100429
  Receipt Date: 20100419
  Transmission Date: 20101027
  Serious: Yes (Other)
  Sender: FDA-Public Use
  Company Number: US-AMGEN-KDC407987

PATIENT
  Age: 44 Year
  Sex: Female

DRUGS (6)
  1. NEULASTA [Suspect]
     Indication: BREAST CANCER
     Route: 058
  2. TRASTUZUMAB [Suspect]
     Route: 042
  3. LAPATINIB [Suspect]
     Route: 048
  4. PACLITAXEL [Suspect]
     Route: 042
  5. DOXORUBICIN HCL [Suspect]
     Route: 042
  6. CYCLOPHOSPHAMIDE [Suspect]
     Route: 042

REACTIONS (1)
  - EJECTION FRACTION DECREASED [None]
